FAERS Safety Report 8955447 (Version 1)
Quarter: 2012Q4

REPORT INFORMATION
  Report Type: 
  Country: CA (occurrence: CA)
  Receive Date: 20121207
  Receipt Date: 20121207
  Transmission Date: 20130627
  Serious: Yes (Other)
  Sender: FDA-Public Use
  Company Number: CA-ROCHE-1165187

PATIENT
  Sex: Female
  Weight: 154.18 kg

DRUGS (1)
  1. OMALIZUMAB [Suspect]
     Indication: ASTHMA
     Route: 058
     Dates: start: 20081107

REACTIONS (8)
  - Rheumatoid arthritis [Unknown]
  - Sinusitis [Unknown]
  - Respiratory rate increased [Unknown]
  - Oedema peripheral [Unknown]
  - Nasopharyngitis [Unknown]
  - Influenza like illness [Unknown]
  - Arthralgia [Unknown]
  - Nausea [Unknown]
